FAERS Safety Report 8913897 (Version 1)
Quarter: 2012Q4

REPORT INFORMATION
  Report Type: 
  Country: US (occurrence: US)
  Receive Date: 20121116
  Receipt Date: 20121116
  Transmission Date: 20130627
  Serious: Yes (Hospitalization)
  Sender: FDA-Public Use
  Company Number: US-BIOGENIDEC-2007BI014463

PATIENT
  Age: 46 Year
  Sex: Female

DRUGS (1)
  1. AVONEX [Suspect]
     Indication: MULTIPLE SCLEROSIS
     Route: 030
     Dates: start: 20030125, end: 20071001

REACTIONS (12)
  - Osteoarthritis [Not Recovered/Not Resolved]
  - Chondropathy [Recovered/Resolved]
  - Nephrolithiasis [Unknown]
  - Hypertension [Unknown]
  - Urinary tract infection [Unknown]
  - Influenza like illness [Unknown]
  - Musculoskeletal stiffness [Unknown]
  - Arthralgia [Unknown]
  - Paraesthesia [Recovered/Resolved]
  - Depression [Unknown]
  - Nausea [Unknown]
  - Suicidal ideation [Unknown]
